FAERS Safety Report 4399776-1 (Version None)
Quarter: 2004Q3

REPORT INFORMATION
  Report Type: 
  Country: None (occurrence: None)
  Receive Date: 20040714
  Receipt Date: 20040702
  Transmission Date: 20050211
  Serious: Yes (Life-Threatening)
  Sender: FDA-Public Use
  Company Number: 04P-167-0265732-00

PATIENT
  Age: 18 Year
  Sex: Female

DRUGS (7)
  1. VALPROATE SODIUM [Suspect]
     Indication: EPILEPSY
     Dosage: 2500 MG, 1 IN 1 D, PER ORAL
     Route: 048
     Dates: start: 19940701, end: 20040430
  2. CLOBAZAM [Concomitant]
  3. METOPROLOL TARTRATE [Concomitant]
  4. ALFACALCIDOL [Concomitant]
  5. LEVOTHYROXINE SODIUM [Concomitant]
  6. NIFEDIPINE [Concomitant]
  7. LEVETIRACETAM [Concomitant]

REACTIONS (1)
  - MYELODYSPLASTIC SYNDROME [None]
